FAERS Safety Report 24623571 (Version 1)
Quarter: 2024Q4

REPORT INFORMATION
  Report Type: Spontaneous
  Country: FR (occurrence: FR)
  Receive Date: 20241115
  Receipt Date: 20241115
  Transmission Date: 20250115
  Serious: Yes (Congenital Anomaly)
  Sender: AUROBINDO
  Company Number: FR-AFSSAPS-PC2024000882

PATIENT
  Sex: Male

DRUGS (1)
  1. FINASTERIDE [Suspect]
     Active Substance: FINASTERIDE
     Indication: Product used for unknown indication
     Dosage: UNK
     Route: 065
     Dates: start: 2021, end: 2021

REACTIONS (2)
  - Hypospadias [Not Recovered/Not Resolved]
  - Foetal exposure via father [Not Recovered/Not Resolved]

NARRATIVE: CASE EVENT DATE: 20220705
